FAERS Safety Report 7995480-9 (Version None)
Quarter: 2011Q4

REPORT INFORMATION
  Report Type: 
  Country: None (occurrence: None)
  Receive Date: 20111217
  Receipt Date: 20111217
  Transmission Date: 20120403
  Serious: No
  Sender: FDA-Public Use
  Company Number: None

PATIENT

DRUGS (1)
  1. CAFFEINE AND SODIUM BENZOATE CAFFEINE AND SODIUM BENZOATE AMERICAN REG [Suspect]
     Dosage: VIAL

REACTIONS (3)
  - INCORRECT DOSE ADMINISTERED [None]
  - MEDICATION ERROR [None]
  - PRODUCT LABEL CONFUSION [None]
